FAERS Safety Report 8155113-8 (Version None)
Quarter: 2012Q1

REPORT INFORMATION
  Report Type: 
  Country: None (occurrence: None)
  Receive Date: 20120221
  Receipt Date: 20120207
  Transmission Date: 20120608
  Serious: Yes (Hospitalization)
  Sender: FDA-Public Use
  Company Number: DE-ROCHE-1037917

PATIENT
  Age: 72 Year
  Sex: Male

DRUGS (8)
  1. ACTEMRA [Suspect]
     Indication: RHEUMATOID ARTHRITIS
     Route: 042
     Dates: start: 20110927
  2. METFORMIN HCL [Concomitant]
     Dates: start: 20070101
  3. APIDRA [Concomitant]
     Dosage: TDD 10/E
  4. FOLSAURE [Concomitant]
     Dates: start: 20050523
  5. OMEPRAZOLE [Concomitant]
  6. LANTUS [Concomitant]
     Dosage: TDD 34/E
     Dates: start: 20070101
  7. METOPROLOL TARTRATE [Concomitant]
     Dates: start: 20070101
  8. RAMIPRIL [Concomitant]
     Dates: start: 20080101

REACTIONS (1)
  - BURSITIS [None]
